FAERS Safety Report 7766620-1 (Version None)
Quarter: 2011Q3

REPORT INFORMATION
  Report Type: 
  Country: None (occurrence: None)
  Receive Date: 20110916
  Receipt Date: 20101221
  Transmission Date: 20111222
  Serious: Yes (Other)
  Sender: FDA-Public Use
  Company Number: CIP10003162

PATIENT
  Age: 48 Year
  Sex: Male

DRUGS (5)
  1. CYMBALTA [Concomitant]
  2. PERCOCET [Concomitant]
  3. ALL OTHER THERAPEUTIC PRODUCTS [Concomitant]
  4. ACTONEL [Suspect]
     Indication: OSTEOPOROSIS
     Dosage: 35 MG ONCE WEEKLY, ORAL
     Route: 048
     Dates: start: 19960101, end: 20100428
  5. REMERON [Concomitant]

REACTIONS (3)
  - FALL [None]
  - IMPAIRED HEALING [None]
  - FEMUR FRACTURE [None]
